FAERS Safety Report 25500121 (Version 1)
Quarter: 2025Q3

REPORT INFORMATION
  Report Type: Spontaneous
  Country: US (occurrence: None)
  Receive Date: 20250701
  Receipt Date: 20250701
  Transmission Date: 20251021
  Serious: Yes (Disabling, Other)
  Sender: FDA-CTU
  Company Number: None

PATIENT
  Age: 39 Year
  Sex: Female
  Weight: 56.25 kg

DRUGS (5)
  1. CIPROFLOXACIN HYDROCHLORIDE [Suspect]
     Active Substance: CIPROFLOXACIN HYDROCHLORIDE
     Indication: Urinary tract infection
     Dosage: 1 TABLET EVERY 12 HOURS ORAL
     Route: 048
     Dates: start: 20250403, end: 20250405
  2. ESCITALOPRAM OXALATE [Concomitant]
     Active Substance: ESCITALOPRAM OXALATE
  3. MIRTAZAPINE [Concomitant]
     Active Substance: MIRTAZAPINE
  4. BUPROPION [Suspect]
     Active Substance: BUPROPION
  5. QUETIAPINE [Suspect]
     Active Substance: QUETIAPINE

REACTIONS (6)
  - Panic attack [None]
  - Suicidal ideation [None]
  - Anxiety [None]
  - Depression [None]
  - Tachycardia [None]
  - Drug interaction [None]

NARRATIVE: CASE EVENT DATE: 20250403
